FAERS Safety Report 6455447-9 (Version None)
Quarter: 2009Q4

REPORT INFORMATION
  Report Type: 
  Country: None (occurrence: None)
  Receive Date: 20091125
  Receipt Date: 20091012
  Transmission Date: 20100525
  Serious: No
  Sender: FDA-Public Use
  Company Number: US-ABBOTT-09P-163-0602530-00

PATIENT
  Sex: Female
  Weight: 49.94 kg

DRUGS (5)
  1. SIMCOR [Suspect]
     Indication: BLOOD CHOLESTEROL INCREASED
     Dosage: 500MG/20MG DAILY AT NIGHT
     Route: 048
     Dates: start: 20090201
  2. BABY ASPIRIN [Concomitant]
     Indication: PROPHYLAXIS
     Route: 048
  3. DYNACIRC [Concomitant]
     Indication: HYPERTENSION
     Route: 048
  4. ZIAC [Concomitant]
     Indication: HYPERTENSION
     Dosage: 10/6.25 DAILY
     Route: 048
  5. MICARDIS [Concomitant]
     Indication: HYPERTENSION

REACTIONS (4)
  - BURNING SENSATION [None]
  - ERYTHEMA [None]
  - FLUSHING [None]
  - PRURITUS [None]
